FAERS Safety Report 14436275 (Version 1)
Quarter: 2018Q1

REPORT INFORMATION
  Report Type: Spontaneous
  Country: US (occurrence: US)
  Receive Date: 20180124
  Receipt Date: 20180124
  Transmission Date: 20180509
  Serious: Yes (Disabling, Other)
  Sender: FDA-Public Use
  Company Number: None

PATIENT
  Age: 82 Year
  Weight: 67.5 kg

DRUGS (4)
  1. CARBO/LEVO [Concomitant]
  2. TAMIFLU [Suspect]
     Active Substance: OSELTAMIVIR PHOSPHATE
     Indication: INFLUENZA
     Dosage: ?          QUANTITY:3 CAPSULE(S);?
     Route: 048
     Dates: start: 20180121, end: 20180122
  3. SIMONET [Concomitant]
  4. MINODRINE [Concomitant]

REACTIONS (3)
  - Therapy cessation [None]
  - Dementia [None]
  - Confusional state [None]

NARRATIVE: CASE EVENT DATE: 20180122
